FAERS Safety Report 8822105 (Version 2)
Quarter: 2013Q2

REPORT INFORMATION
  Report Type: Spontaneous
  Country: FI (occurrence: FI)
  Receive Date: 20121003
  Receipt Date: 20130405
  Transmission Date: 20140414
  Serious: Yes (Other)
  Sender: FDA-Public Use
  Company Number: FI-JNJFOC-20120911192

PATIENT
  Age: 14 Year
  Sex: Male

DRUGS (5)
  1. CONCERTA [Suspect]
     Indication: ATTENTION DEFICIT/HYPERACTIVITY DISORDER
     Route: 048
  2. CONCERTA [Suspect]
     Indication: ATTENTION DEFICIT/HYPERACTIVITY DISORDER
     Route: 048
     Dates: start: 200712
  3. ALCOHOL [Suspect]
     Indication: PRODUCT USED FOR UNKNOWN INDICATION
     Route: 065
  4. MEDIKINET [Suspect]
     Indication: ANTISOCIAL BEHAVIOUR
     Dosage: IN THE AFTERNOON
     Route: 065
  5. MELATONIN [Concomitant]
     Indication: ANTISOCIAL BEHAVIOUR
     Route: 065

REACTIONS (2)
  - Substance abuse [Recovered/Resolved]
  - Drug ineffective [Unknown]
